FAERS Safety Report 8453804 (Version 2)
Quarter: 2013Q2

REPORT INFORMATION
  Report Type: Spontaneous
  Country: US (occurrence: None)
  Receive Date: 20120227
  Receipt Date: 20130225
  Transmission Date: 20140414
  Serious: Yes (Hospitalization)
  Sender: FDA-Public Use
  Company Number: 343048

PATIENT
  Age: 56 Year
  Sex: Male
  Weight: 107.5 kg

DRUGS (3)
  1. VICTOZA [Suspect]
     Indication: TYPE 2 DIABETES MELLITUS
     Route: 058
     Dates: start: 20111028, end: 20111214
  2. GLIPIZIDE [Concomitant]
  3. LISINOPRIL (LISINOPRIL) [Concomitant]

REACTIONS (1)
  - PANCREATITIS ACUTE [None]
